FAERS Safety Report 11287688 (Version 1)
Quarter: 2015Q3

REPORT INFORMATION
  Report Type: Spontaneous
  Country: US (occurrence: US)
  Receive Date: 20150721
  Receipt Date: 20150721
  Transmission Date: 20151125
  Serious: No
  Sender: FDA-Public Use
  Company Number: US-UNITED THERAPEUTICS-UNT-2015-000810

PATIENT
  Age: 61 Year
  Sex: Female

DRUGS (2)
  1. REMODULIN [Suspect]
     Active Substance: TREPROSTINIL
     Dosage: 0.062 ?G/KG/MIN, CONTINUING
     Route: 058
     Dates: start: 20150121
  2. REMODULIN [Suspect]
     Active Substance: TREPROSTINIL
     Indication: PULMONARY ARTERIAL HYPERTENSION
     Dosage: 0.069 ?G/KG/MIN, CONTINUING
     Route: 058
     Dates: start: 20140325, end: 20150121

REACTIONS (2)
  - Decreased appetite [Recovering/Resolving]
  - Nausea [Recovering/Resolving]
